FAERS Safety Report 25742931 (Version 1)
Quarter: 2025Q3

REPORT INFORMATION
  Report Type: Spontaneous
  Country: AU (occurrence: AU)
  Receive Date: 20250830
  Receipt Date: 20250830
  Transmission Date: 20251020
  Serious: Yes (Other)
  Sender: ACCORD
  Company Number: None

PATIENT
  Age: 9 Year
  Sex: Female

DRUGS (3)
  1. MONTELUKAST SODIUM [Suspect]
     Active Substance: MONTELUKAST SODIUM
     Indication: Product used for unknown indication
  2. FLUTICASONE PROPIONATE [Concomitant]
     Active Substance: FLUTICASONE PROPIONATE
  3. LISDEXAMFETAMINE DIMESYLATE [Concomitant]
     Active Substance: LISDEXAMFETAMINE DIMESYLATE

REACTIONS (13)
  - Epistaxis [Unknown]
  - Abnormal dreams [Unknown]
  - Aggression [Unknown]
  - Agitation [Unknown]
  - Angina pectoris [Unknown]
  - Behaviour disorder [Unknown]
  - Depression [Unknown]
  - Fatigue [Unknown]
  - Mood altered [Unknown]
  - Nightmare [Unknown]
  - Palpitations [Unknown]
  - Sleep disorder [Unknown]
  - Product ineffective [Unknown]
